FAERS Safety Report 10480704 (Version 2)
Quarter: 2014Q3

REPORT INFORMATION
  Report Type: Spontaneous
  Country: US (occurrence: US)
  Receive Date: 20140929
  Receipt Date: 20140929
  Transmission Date: 20150326
  Serious: Yes (Other)
  Sender: FDA-Public Use
  Company Number: US-CIPLA LTD.-2014US01443

PATIENT
  Age: 57 Year
  Sex: Male

DRUGS (6)
  1. CAPECITABINE [Concomitant]
     Active Substance: CAPECITABINE
     Indication: PANCREATIC CARCINOMA
     Dosage: 1600 MG/M2 PER DAY, IN TWO DIVIDED DOSES MONDAY-FRIDAY
  2. CAPECITABINE [Concomitant]
     Active Substance: CAPECITABINE
     Dosage: 850 MG/M2, BID, MONDAY-FRIDAY
  3. GEMCITABINE [Suspect]
     Active Substance: GEMCITABINE\GEMCITABINE HYDROCHLORIDE
     Indication: PANCREATIC CARCINOMA
     Dosage: UNK, 24 HR CONTINUOUS INFUSION, EVERY 2 WEEKS
  4. IRINOTECAN [Concomitant]
     Active Substance: IRINOTECAN
     Indication: PANCREATIC CARCINOMA
     Dosage: UNK, 24 HR CONTINOUS INFUSION, EVERY 2 WEEKS
  5. CAPECITABINE [Concomitant]
     Active Substance: CAPECITABINE
     Dosage: 2000 MG/M2, BID, FOR 14 DAYS Q 21 DAYS
     Route: 048
  6. RADIATION [Concomitant]
     Active Substance: RADIATION THERAPY
     Indication: PANCREATIC CARCINOMA
     Dosage: 50.4 GY AT 1.8 GY/DAY OVER 5.5 WEEKS

REACTIONS (3)
  - Gastritis [Unknown]
  - Recall phenomenon [Unknown]
  - Duodenitis [Unknown]
